FAERS Safety Report 6264558-2 (Version None)
Quarter: 2009Q3

REPORT INFORMATION
  Report Type: 
  Country: None (occurrence: None)
  Receive Date: 20090708
  Receipt Date: 20090623
  Transmission Date: 20100115
  Serious: Yes (Other)
  Sender: FDA-Public Use
  Company Number: DSJ-2009-08149

PATIENT
  Age: 90 Year
  Sex: Male

DRUGS (4)
  1. OLMESARTAN MEDOXOMIL [Suspect]
     Indication: HYPERTENSION
     Dosage: 20 MG (1 IN 1 D), PER ORAL, 40 MG (1 IN 1 D), PER ORAL
     Route: 048
     Dates: end: 20090618
  2. OLMESARTAN MEDOXOMIL [Suspect]
     Indication: HYPERTENSION
     Dosage: 20 MG (1 IN 1 D), PER ORAL, 40 MG (1 IN 1 D), PER ORAL
     Route: 048
     Dates: start: 20090619, end: 20090621
  3. NORVASC [Concomitant]
  4. OPALMON (LIMAPROST) (LIMAPROST) [Concomitant]

REACTIONS (3)
  - BLOOD GLUCOSE INCREASED [None]
  - BLOOD PRESSURE SYSTOLIC INCREASED [None]
  - HYPOGLYCAEMIA [None]
